FAERS Safety Report 8059670-1 (Version None)
Quarter: 2012Q1

REPORT INFORMATION
  Report Type: 
  Country: None (occurrence: None)
  Receive Date: 20120120
  Receipt Date: 20120113
  Transmission Date: 20120608
  Serious: Yes (Other)
  Sender: FDA-Public Use
  Company Number: PHHY2010US54209

PATIENT
  Sex: Male

DRUGS (1)
  1. TASIGNA [Suspect]
     Indication: CHRONIC MYELOID LEUKAEMIA
     Dosage: 400 MG, QD
     Route: 048
     Dates: start: 20080122

REACTIONS (6)
  - RENAL DISORDER [None]
  - BLOOD CREATININE INCREASED [None]
  - CARDIAC FAILURE CONGESTIVE [None]
  - PLEURAL EFFUSION [None]
  - CARDIAC DISORDER [None]
  - OEDEMA PERIPHERAL [None]
